FAERS Safety Report 16186290 (Version 1)
Quarter: 2019Q2

REPORT INFORMATION
  Report Type: Spontaneous
  Country: US (occurrence: US)
  Receive Date: 20190411
  Receipt Date: 20190411
  Transmission Date: 20190711
  Serious: No
  Sender: FDA-Public Use
  Company Number: US-PERRIGO-18US007756

PATIENT
  Age: 54 Year
  Sex: Female
  Weight: 71.66 kg

DRUGS (2)
  1. PSEUDOEPHEDRINE HYDROCHLORIDE. [Suspect]
     Active Substance: PSEUDOEPHEDRINE HYDROCHLORIDE
     Indication: EYE PRURITUS
     Dosage: 1/2 TABLET, SINGLE
     Route: 048
     Dates: start: 20180731, end: 20180731
  2. PSEUDOEPHEDRINE HYDROCHLORIDE. [Suspect]
     Active Substance: PSEUDOEPHEDRINE HYDROCHLORIDE
     Indication: NASAL CONGESTION
     Dosage: 120 MG, QD PRN
     Route: 048
     Dates: start: 201806

REACTIONS (3)
  - Wrong technique in product usage process [Recovered/Resolved]
  - Off label use [Unknown]
  - Underdose [Recovered/Resolved]

NARRATIVE: CASE EVENT DATE: 201806
